FAERS Safety Report 9498348 (Version 1)
Quarter: 2013Q3

REPORT INFORMATION
  Report Type: Spontaneous
  Country: US (occurrence: None)
  Receive Date: 20130903
  Receipt Date: 20130903
  Transmission Date: 20140515
  Serious: No
  Sender: FDA-Public Use
  Company Number: None

PATIENT
  Age: 28 Year
  Sex: Female
  Weight: 63.5 kg

DRUGS (3)
  1. PANTOPRIAZOLE [Suspect]
     Indication: GASTROOESOPHAGEAL REFLUX DISEASE
     Route: 048
     Dates: start: 20130605, end: 20130703
  2. PROTONIX [Suspect]
     Indication: PREGNANCY
     Dates: start: 2008
  3. PRENATAL VITAMINS [Concomitant]

REACTIONS (2)
  - Drug ineffective [None]
  - Product substitution issue [None]
